FAERS Safety Report 9983857 (Version 5)
Quarter: 2015Q1

REPORT INFORMATION
  Report Type: Spontaneous
  Country: IT (occurrence: IT)
  Receive Date: 20140307
  Receipt Date: 20150223
  Transmission Date: 20150721
  Serious: Yes (Other)
  Sender: FDA-Public Use
  Company Number: PHHY2014IT025040

PATIENT
  Age: 69 Year
  Sex: Female

DRUGS (1)
  1. AMLODIPINE [Suspect]
     Active Substance: AMLODIPINE BESYLATE
     Indication: HYPERTENSION
     Dosage: 10 MG, QD
     Route: 048
     Dates: start: 201302, end: 201307

REACTIONS (5)
  - Loose tooth [Unknown]
  - Gingival erythema [Unknown]
  - Periodontitis [Unknown]
  - Gingival swelling [Unknown]
  - Purulence [Unknown]

NARRATIVE: CASE EVENT DATE: 201305
